FAERS Safety Report 20691515 (Version 2)
Quarter: 2022Q2

REPORT INFORMATION
  Report Type: Spontaneous
  Country: US (occurrence: US)
  Receive Date: 20220408
  Receipt Date: 20220412
  Transmission Date: 20220721
  Serious: No
  Sender: FDA-Public Use
  Company Number: US-PFIZER INC-202200532198

PATIENT
  Age: 56 Year
  Sex: Female
  Weight: 85.261 kg

DRUGS (1)
  1. PAXLOVID [Suspect]
     Active Substance: NIRMATRELVIR\RITONAVIR
     Indication: COVID-19
     Dosage: TWO 150 MG NIRMATRELVIR TABLETS AND ONE 100 MG TABLET OF RITONAVIR TWICE DAILY
     Route: 048
     Dates: start: 20220406

REACTIONS (2)
  - Oropharyngeal discomfort [Unknown]
  - Dysgeusia [Unknown]

NARRATIVE: CASE EVENT DATE: 20220406
